FAERS Safety Report 4727898-1 (Version None)
Quarter: 2005Q3

REPORT INFORMATION
  Report Type: 
  Country: None (occurrence: None)
  Receive Date: 20050728
  Receipt Date: 20050721
  Transmission Date: 20060218
  Serious: Yes (Death)
  Sender: FDA-Public Use
  Company Number: US-MERCK-0507USA03363

PATIENT
  Sex: Male

DRUGS (1)
  1. VIOXX [Suspect]
     Route: 048
     Dates: start: 19991201, end: 20031108

REACTIONS (1)
  - CARDIAC ARREST [None]
